FAERS Safety Report 8943976 (Version 1)
Quarter: 2012Q4

REPORT INFORMATION
  Report Type: 
  Country: US (occurrence: US)
  Receive Date: 20121204
  Receipt Date: 20121204
  Transmission Date: 20130627
  Serious: No
  Sender: FDA-Public Use
  Company Number: US-AMGEN-USASP2012069145

PATIENT
  Age: 57 Year
  Sex: Female

DRUGS (2)
  1. ENBREL [Suspect]
     Indication: RHEUMATOID ARTHRITIS
     Dosage: 50 mg, qwk
     Dates: start: 20120101
  2. METHOTREXATE [Concomitant]
     Dosage: 7.5 mg, qwk
     Route: 048
     Dates: start: 2010

REACTIONS (1)
  - Pain [Not Recovered/Not Resolved]
